FAERS Safety Report 8477702-3 (Version None)
Quarter: 2012Q2

REPORT INFORMATION
  Report Type: 
  Country: None (occurrence: None)
  Receive Date: 20120621
  Receipt Date: 20120604
  Transmission Date: 20120825
  Serious: No
  Sender: FDA-Public Use
  Company Number: 2012SA040204

PATIENT
  Age: 46 Year
  Sex: Female

DRUGS (1)
  1. MENTHOL / UNKNOWN / UNKNOWN [Suspect]
     Indication: NECK PAIN
     Dates: start: 20120604, end: 20120604

REACTIONS (3)
  - ERYTHEMA [None]
  - HYPOAESTHESIA [None]
  - BURNING SENSATION [None]
